FAERS Safety Report 8729563 (Version 2)
Quarter: 2015Q2

REPORT INFORMATION
  Report Type: Report from Study
  Country: US (occurrence: US)
  Receive Date: 20120817
  Receipt Date: 20150625
  Transmission Date: 20150821
  Serious: Yes (Hospitalization)
  Sender: FDA-Public Use
  Company Number: US-ROCHE-1101524

PATIENT
  Age: 54 Year
  Sex: Female

DRUGS (25)
  1. ACTIVASE [Suspect]
     Active Substance: ALTEPLASE
     Indication: ACUTE MYOCARDIAL INFARCTION
     Route: 042
     Dates: start: 19940202
  2. NITROGLYCERIN. [Concomitant]
     Active Substance: NITROGLYCERIN
     Dosage: PATCH
     Route: 042
     Dates: start: 19940202
  3. PROCARDIA (UNITED STATES) [Concomitant]
     Route: 048
  4. MORPHINE SULFATE. [Concomitant]
     Active Substance: MORPHINE SULFATE
     Dosage: 3-5 MG
     Route: 042
  5. PHENERGAN [Concomitant]
     Active Substance: PROMETHAZINE HYDROCHLORIDE
     Dosage: 12.5 -25 MG (INTRA CORPUS CAVERNOSUM)
     Route: 065
  6. NITROGLYCERIN. [Concomitant]
     Active Substance: NITROGLYCERIN
     Route: 065
  7. ASPIRIN. [Concomitant]
     Active Substance: ASPIRIN
     Route: 065
  8. ACTIVASE [Suspect]
     Active Substance: ALTEPLASE
     Route: 040
  9. ACTIVASE [Suspect]
     Active Substance: ALTEPLASE
     Route: 042
  10. HEPARIN [Concomitant]
     Active Substance: HEPARIN SODIUM
     Dosage: 1000 UNITS
     Route: 065
  11. TYLENOL [Concomitant]
     Active Substance: ACETAMINOPHEN
     Route: 048
  12. LIDOCAINE. [Concomitant]
     Active Substance: LIDOCAINE
     Route: 065
  13. NITROGLYCERIN. [Concomitant]
     Active Substance: NITROGLYCERIN
     Dosage: 1-150 MG
     Route: 065
  14. HEPARIN [Concomitant]
     Active Substance: HEPARIN SODIUM
     Dosage: 10000 UNIT NOT REPORTED
     Route: 065
  15. VASOTEC [Concomitant]
     Active Substance: ENALAPRIL MALEATE
     Route: 048
  16. HEPARIN [Concomitant]
     Active Substance: HEPARIN SODIUM
     Dosage: 20000 UNIT NOT REPORTED
     Route: 065
  17. ZANTAC [Concomitant]
     Active Substance: RANITIDINE HYDROCHLORIDE
     Route: 065
  18. ATROPINE [Concomitant]
     Active Substance: ATROPINE
     Route: 065
  19. ACTIVASE [Suspect]
     Active Substance: ALTEPLASE
     Route: 042
  20. LIDOCAINE. [Concomitant]
     Active Substance: LIDOCAINE
     Route: 042
     Dates: start: 19940202
  21. HEPARIN [Concomitant]
     Active Substance: HEPARIN SODIUM
     Dosage: 1100 UNITS NOT REPORTED
     Route: 042
  22. ATIVAN [Concomitant]
     Active Substance: LORAZEPAM
     Dosage: 0.5 - 1 MG
     Route: 065
  23. SURFAK (UNITED STATES) [Concomitant]
     Route: 048
  24. MILK OF MAGNESIA [Concomitant]
     Active Substance: MAGNESIUM HYDROXIDE
     Dosage: 30CC
     Route: 048
  25. HEPARIN [Concomitant]
     Active Substance: HEPARIN SODIUM
     Dosage: IV PUSH , 5000 UNITS
     Route: 042

REACTIONS (2)
  - Reperfusion arrhythmia [Unknown]
  - Blood creatine phosphokinase MB increased [Unknown]

NARRATIVE: CASE EVENT DATE: 19940202
